FAERS Safety Report 4414161-1 (Version None)
Quarter: 2004Q3

REPORT INFORMATION
  Report Type: 
  Country: None (occurrence: None)
  Receive Date: 20040803
  Receipt Date: 20040720
  Transmission Date: 20050211
  Serious: Yes (Other)
  Sender: FDA-Public Use
  Company Number: SZ-BRISTOL-MYERS SQUIBB COMPANY-12645099

PATIENT
  Age: 2 Month
  Sex: Male

DRUGS (8)
  1. STOCRIN [Suspect]
     Indication: HIV INFECTION
     Route: 048
     Dates: start: 20040622
  2. STAVUDINE [Suspect]
     Indication: HIV INFECTION
     Route: 048
     Dates: start: 20040607, end: 20040726
  3. LAMIVUDINE [Suspect]
     Indication: HIV INFECTION
     Route: 048
     Dates: start: 20040607
  4. NEVIRAPINE [Suspect]
     Indication: HIV INFECTION
     Dates: start: 20040607, end: 20040622
  5. RIFAMPICIN [Concomitant]
     Indication: TUBERCULOSIS
     Dates: start: 20040622, end: 20040719
  6. INH [Concomitant]
     Indication: TUBERCULOSIS
     Dates: start: 20040622, end: 20040719
  7. PYRAZINAMIDE [Concomitant]
     Indication: TUBERCULOSIS
     Dates: start: 20040622, end: 20040719
  8. ETHAMBUTOL HCL [Concomitant]
     Indication: TUBERCULOSIS
     Dates: start: 20040622, end: 20040719

REACTIONS (5)
  - MALAISE [None]
  - NEUROPATHY PERIPHERAL [None]
  - ORAL SOFT TISSUE DISORDER [None]
  - RASH PRURITIC [None]
  - TUBERCULOSIS [None]
